FAERS Safety Report 13575491 (Version 1)
Quarter: 2017Q2

REPORT INFORMATION
  Report Type: Spontaneous
  Country: US (occurrence: US)
  Receive Date: 20170523
  Receipt Date: 20170523
  Transmission Date: 20170830
  Serious: Yes (Other)
  Sender: FDA-Public Use
  Company Number: None

PATIENT
  Age: 43 Year
  Sex: Female

DRUGS (12)
  1. BACLOFEN. [Concomitant]
     Active Substance: BACLOFEN
  2. LEVETIRACETAM. [Concomitant]
     Active Substance: LEVETIRACETAM
  3. INTERFERON BETA-1A [Concomitant]
     Active Substance: INTERFERON BETA-1A
  4. TECFIDERA [Concomitant]
     Active Substance: DIMETHYL FUMARATE
  5. SCOPOLAMINE [Concomitant]
     Active Substance: SCOPOLAMINE
  6. LACTULOSE. [Concomitant]
     Active Substance: LACTULOSE
  7. MORPHINE [Concomitant]
     Active Substance: MORPHINE
  8. AMPYRA [Suspect]
     Active Substance: DALFAMPRIDINE
     Indication: MULTIPLE SCLEROSIS
     Route: 048
     Dates: start: 201602, end: 201704
  9. DIAZEPAM. [Concomitant]
     Active Substance: DIAZEPAM
  10. HYDROMORPHONE [Concomitant]
     Active Substance: HYDROMORPHONE
  11. ONDANSETRON [Concomitant]
     Active Substance: ONDANSETRON
  12. HCTZ [Concomitant]
     Active Substance: HYDROCHLOROTHIAZIDE

REACTIONS (1)
  - Nervousness [None]

NARRATIVE: CASE EVENT DATE: 20170415
